FAERS Safety Report 7190578-X (Version None)
Quarter: 2010Q4

REPORT INFORMATION
  Report Type: 
  Country: None (occurrence: None)
  Receive Date: 20101223
  Receipt Date: 20101215
  Transmission Date: 20110411
  Serious: Yes (Hospitalization)
  Sender: FDA-Public Use
  Company Number: US-JNJFOC-20100802673

PATIENT
  Sex: Female
  Weight: 36 kg

DRUGS (8)
  1. REMICADE [Suspect]
     Indication: INFLAMMATORY BOWEL DISEASE
     Route: 042
  2. REMICADE [Suspect]
     Route: 042
  3. BENADRYL [Suspect]
     Indication: PRODUCT USED FOR UNKNOWN INDICATION
  4. MESALAMINE [Concomitant]
     Route: 048
  5. LANSOPRAZOLE [Concomitant]
  6. MULTIVIT [Concomitant]
  7. MESALAMINE [Concomitant]
     Route: 054
  8. ACETAMINOPHEN [Concomitant]

REACTIONS (2)
  - HYPOTENSION [None]
  - INFUSION RELATED REACTION [None]
